FAERS Safety Report 11388471 (Version 1)
Quarter: 2015Q3

REPORT INFORMATION
  Report Type: Spontaneous
  Country: NO (occurrence: NO)
  Receive Date: 20150817
  Receipt Date: 20150817
  Transmission Date: 20151125
  Serious: Yes (Life-Threatening, Other)
  Sender: FDA-Public Use
  Company Number: NO-TEVA-584807ISR

PATIENT
  Age: 82 Year
  Sex: Male

DRUGS (11)
  1. PREDNISOLON [Concomitant]
     Active Substance: PREDNISOLONE
     Route: 048
  2. CETIRIZINE [Concomitant]
     Active Substance: CETIRIZINE HYDROCHLORIDE
     Route: 048
  3. FOLSYRE NAF [Concomitant]
     Active Substance: FOLIC ACID
     Route: 048
  4. METHOTREXATE [Suspect]
     Active Substance: METHOTREXATE
     Indication: PSORIASIS
     Route: 048
     Dates: end: 20150708
  5. SOMAC [Concomitant]
     Active Substance: PANTOPRAZOLE SODIUM
     Route: 048
  6. BURINEX [Concomitant]
     Active Substance: BUMETANIDE
     Route: 048
  7. MONOKET [Concomitant]
     Active Substance: ISOSORBIDE MONONITRATE
     Route: 048
  8. KALEORID [Concomitant]
     Active Substance: POTASSIUM CHLORIDE
     Route: 048
  9. ZOPICLONE [Concomitant]
     Active Substance: ZOPICLONE
     Route: 048
  10. METOPROLOL TARTRATE. [Concomitant]
     Active Substance: METOPROLOL TARTRATE
     Route: 048
  11. ALBYL-E [Concomitant]
     Active Substance: ASPIRIN\MAGNESIUM OXIDE
     Route: 048

REACTIONS (3)
  - Pancytopenia [Recovering/Resolving]
  - Hypernatraemia [Recovering/Resolving]
  - Sepsis [Recovering/Resolving]

NARRATIVE: CASE EVENT DATE: 20150708
